FAERS Safety Report 14426767 (Version 1)
Quarter: 2018Q1

REPORT INFORMATION
  Report Type: Spontaneous
  Country: US (occurrence: US)
  Receive Date: 20180123
  Receipt Date: 20180123
  Transmission Date: 20180509
  Serious: No
  Sender: FDA-Public Use
  Company Number: US-GLAXOSMITHKLINE-US2018009501

PATIENT
  Age: 27 Year

DRUGS (1)
  1. BENLYSTA [Suspect]
     Active Substance: BELIMUMAB
     Indication: PRODUCT USED FOR UNKNOWN INDICATION
     Dosage: 200 MG, WE
     Route: 058
     Dates: start: 20180118

REACTIONS (3)
  - Underdose [Not Recovered/Not Resolved]
  - Wrong technique in device usage process [Recovering/Resolving]
  - Exposure via skin contact [Recovering/Resolving]

NARRATIVE: CASE EVENT DATE: 20180118
